FAERS Safety Report 21382541 (Version 2)
Quarter: 2022Q3

REPORT INFORMATION
  Report Type: Report from Study
  Country: FR (occurrence: None)
  Receive Date: 20220927
  Receipt Date: 20220929
  Transmission Date: 20221027
  Serious: Yes (Hospitalization)
  Sender: FDA-Public Use
  Company Number: FR-ROCHE-3181971

PATIENT
  Age: 75 Year
  Sex: Male
  Weight: 91 kg

DRUGS (6)
  1. OBINUTUZUMAB [Suspect]
     Active Substance: OBINUTUZUMAB
     Indication: Lymphoma
     Route: 042
     Dates: start: 20220429
  2. GLOFITAMAB [Suspect]
     Active Substance: GLOFITAMAB
     Indication: Lymphoma
     Dosage: ON 04/MAY/2022, PATIENT RECEIVED MOST RECENT DOSE OF IV GLOFITAMAB 10 MG BEFORE SAE
     Route: 042
     Dates: start: 20220502
  3. GLOFITAMAB [Suspect]
     Active Substance: GLOFITAMAB
     Route: 042
     Dates: start: 20220504
  4. LEVOTHYROXINE [Concomitant]
     Active Substance: LEVOTHYROXINE
  5. ALFUZOSIN [Concomitant]
     Active Substance: ALFUZOSIN
  6. GINKGO EXTRACT\HEPTAMINOL\TROXERUTIN [Concomitant]
     Active Substance: GINKGO\HEPTAMINOL\TROXERUTIN

REACTIONS (3)
  - Rash [Recovered/Resolved with Sequelae]
  - Red blood cell count decreased [Recovered/Resolved with Sequelae]
  - Cytokine release syndrome [Unknown]

NARRATIVE: CASE EVENT DATE: 20220503
